FAERS Safety Report 6210895-7 (Version None)
Quarter: 2009Q2

REPORT INFORMATION
  Report Type: 
  Country: None (occurrence: None)
  Receive Date: 20090601
  Receipt Date: 20090521
  Transmission Date: 20091009
  Serious: Yes (Hospitalization)
  Sender: FDA-Public Use
  Company Number: ES-SANOFI-SYNTHELABO-A01200905458

PATIENT
  Age: 66 Year
  Sex: Male

DRUGS (4)
  1. TAMSULOSIN HCL [Concomitant]
  2. PANTOPRAZOLE SODIUM [Concomitant]
  3. XELODA [Suspect]
     Indication: RECTAL CANCER
     Dates: start: 20090318
  4. OXALIPLATIN [Suspect]
     Indication: RECTAL CANCER
     Route: 042
     Dates: start: 20090318, end: 20090318

REACTIONS (1)
  - ACUTE MYOCARDIAL INFARCTION [None]
